FAERS Safety Report 9934979 (Version 2)
Quarter: 2014Q1

REPORT INFORMATION
  Report Type: Spontaneous
  Country: IT (occurrence: IT)
  Receive Date: 20140228
  Receipt Date: 20140228
  Transmission Date: 20141002
  Serious: Yes (Death, Hospitalization)
  Sender: FDA-Public Use
  Company Number: PHHY2013IT141536

PATIENT
  Age: 26 Year
  Sex: Female

DRUGS (1)
  1. GILENYA [Suspect]
     Indication: MULTIPLE SCLEROSIS
     Route: 048
     Dates: start: 201110, end: 20130314

REACTIONS (12)
  - Death [Fatal]
  - Multiple sclerosis relapse [Recovering/Resolving]
  - Balance disorder [Recovering/Resolving]
  - Muscular weakness [Recovering/Resolving]
  - Gait disturbance [Recovering/Resolving]
  - Quadriplegia [Recovering/Resolving]
  - Dysarthria [Recovering/Resolving]
  - Ophthalmoplegia [Recovering/Resolving]
  - Dysphagia [Recovering/Resolving]
  - Systemic mycosis [Recovering/Resolving]
  - Aphasia [Not Recovered/Not Resolved]
  - Urinary tract infection [Unknown]
